FAERS Safety Report 16155049 (Version 2)
Quarter: 2019Q2

REPORT INFORMATION
  Report Type: Report from Study
  Country: CO (occurrence: CO)
  Receive Date: 20190403
  Receipt Date: 20190416
  Transmission Date: 20190711
  Serious: Yes (Death, Hospitalization)
  Sender: FDA-Public Use
  Company Number: PHHY2019CO063665

PATIENT
  Age: 81 Year
  Sex: Female
  Weight: 60 kg

DRUGS (4)
  1. FUROSEMIDE. [Concomitant]
     Active Substance: FUROSEMIDE
     Indication: CARDIAC FAILURE
     Dosage: 40 MG, QD
     Route: 048
  2. ENTRESTO [Suspect]
     Active Substance: SACUBITRIL\VALSARTAN
     Indication: CARDIAC FAILURE
     Dosage: 50 MG, Q12H
     Route: 048
     Dates: start: 20180123
  3. SPIRONOLACTONE. [Concomitant]
     Active Substance: SPIRONOLACTONE
     Indication: CARDIAC FAILURE
     Dosage: 25 MG, QD
     Route: 048
  4. CARVEDILOL. [Suspect]
     Active Substance: CARVEDILOL
     Indication: CARDIAC FAILURE
     Dosage: 0.25 MG, QD
     Route: 048

REACTIONS (8)
  - General physical health deterioration [Unknown]
  - Cardiac failure [Fatal]
  - Heart rate decreased [Unknown]
  - Gait inability [Unknown]
  - Fatigue [Unknown]
  - Depressed mood [Unknown]
  - Dyspnoea [Unknown]
  - Choking [Unknown]

NARRATIVE: CASE EVENT DATE: 20190210
